FAERS Safety Report 18358526 (Version 1)
Quarter: 2020Q4

REPORT INFORMATION
  Report Type: Spontaneous
  Country: US (occurrence: US)
  Receive Date: 20201008
  Receipt Date: 20201008
  Transmission Date: 20210114
  Serious: Yes (Hospitalization)
  Sender: FDA-Public Use
  Company Number: US-ROCHE-2691216

PATIENT
  Sex: Male

DRUGS (30)
  1. PANTOPRAZOLE [Concomitant]
     Active Substance: PANTOPRAZOLE
  2. ADVAIR DISKUS [Concomitant]
     Active Substance: FLUTICASONE PROPIONATE\SALMETEROL XINAFOATE
  3. ESBRIET [Suspect]
     Active Substance: PIRFENIDONE
     Indication: IDIOPATHIC PULMONARY FIBROSIS
     Route: 048
     Dates: start: 20190830
  4. CETIRIZINE [Concomitant]
     Active Substance: CETIRIZINE HYDROCHLORIDE
  5. CYCLOBENZAPRINE. [Concomitant]
     Active Substance: CYCLOBENZAPRINE
  6. LATANOPROST. [Concomitant]
     Active Substance: LATANOPROST
  7. LIDOCAINE. [Concomitant]
     Active Substance: LIDOCAINE
  8. NYSTATIN. [Concomitant]
     Active Substance: NYSTATIN
  9. POLYETHYLENE GLYCOL [Concomitant]
     Active Substance: POLYETHYLENE GLYCOLS
  10. DOXYCYCLINE HYCLATE. [Concomitant]
     Active Substance: DOXYCYCLINE HYCLATE
  11. METHYLPREDNISOLONE. [Concomitant]
     Active Substance: METHYLPREDNISOLONE
  12. MI-ACID GAS RELIEF [Concomitant]
     Active Substance: DIMETHICONE
  13. SUMATRIPTAN. [Concomitant]
     Active Substance: SUMATRIPTAN
  14. ELIQUIS [Concomitant]
     Active Substance: APIXABAN
  15. FLECAINIDE [Concomitant]
     Active Substance: FLECAINIDE
  16. PENICILLIN VK [Concomitant]
     Active Substance: PENICILLIN V POTASSIUM
  17. NARCAN [Concomitant]
     Active Substance: NALOXONE HYDROCHLORIDE
  18. SOTALOL HCL [Concomitant]
     Active Substance: SOTALOL
  19. APAP;CODEINE [Concomitant]
  20. LOSARTAN POTASSIUM. [Concomitant]
     Active Substance: LOSARTAN POTASSIUM
  21. SENNA [Concomitant]
     Active Substance: SENNA LEAF\SENNOSIDES\SENNOSIDES A AND B
  22. TRAZODONE [Concomitant]
     Active Substance: TRAZODONE HYDROCHLORIDE
  23. VERAPAMIL [Concomitant]
     Active Substance: VERAPAMIL HYDROCHLORIDE
  24. ACETAMIN [Concomitant]
     Active Substance: ACETAMINOPHEN
  25. ATORVASTATIN [Concomitant]
     Active Substance: ATORVASTATIN
  26. BENZONATATE. [Concomitant]
     Active Substance: BENZONATATE
  27. GABAPENTIN. [Concomitant]
     Active Substance: GABAPENTIN
  28. LANTUS [Concomitant]
     Active Substance: INSULIN GLARGINE
  29. OXYCODONE [Concomitant]
     Active Substance: OXYCODONE
  30. VENTOLIN HFA [Concomitant]
     Active Substance: ALBUTEROL SULFATE

REACTIONS (1)
  - Dyspnoea [Unknown]
